FAERS Safety Report 9039320 (Version 1)
Quarter: 2013Q1

REPORT INFORMATION
  Report Type: Report from Study
  Country: US (occurrence: US)
  Receive Date: 20130129
  Receipt Date: 20130129
  Transmission Date: 20140127
  Serious: No
  Sender: FDA-Public Use
  Company Number: US-ABBOTT-12P-163-0932703-00

PATIENT
  Age: 62 Year
  Sex: Male

DRUGS (11)
  1. HUMIRA 40 MG/ 0.8 ML PRE-FILLED SYRINGE [Suspect]
     Indication: PSORIASIS
     Dates: start: 20120109
  2. ACYCLOVIR [Concomitant]
     Indication: GENITAL HERPES
  3. AGGRENOX [Concomitant]
     Indication: HYPERTENSION
     Dosage: 200/25MG, 2 TABLETS, 2 IN 1 D
  4. ASPIRIN [Concomitant]
     Indication: CEREBROVASCULAR ACCIDENT PROPHYLAXIS
     Dosage: IN AM
  5. DIOVAN [Concomitant]
     Indication: HYPERTENSION
  6. LABETALOL [Concomitant]
     Indication: HYPERTENSION
  7. DIAZEPAM [Concomitant]
     Indication: VERTIGO
  8. SPIRONOLACTONE [Concomitant]
     Indication: PRODUCT USED FOR UNKNOWN INDICATION
  9. MINOXIDIL [Concomitant]
     Indication: PRODUCT USED FOR UNKNOWN INDICATION
  10. MOM [Concomitant]
     Indication: CONSTIPATION
  11. FLEET ENEMA [Concomitant]
     Indication: CONSTIPATION

REACTIONS (2)
  - Bronchitis [Not Recovered/Not Resolved]
  - Chest pain [Not Recovered/Not Resolved]
